FAERS Safety Report 4585531-6 (Version None)
Quarter: 2005Q1

REPORT INFORMATION
  Report Type: 
  Country: None (occurrence: None)
  Receive Date: 20050214
  Receipt Date: 20050127
  Transmission Date: 20050727
  Serious: Yes (Hospitalization)
  Sender: FDA-Public Use
  Company Number: US014677

PATIENT
  Age: 14 Year
  Sex: Female

DRUGS (1)
  1. GABITRIL [Suspect]
     Indication: BIPOLAR DISORDER
     Dosage: 14 MG ONCE ORAL
     Route: 048

REACTIONS (4)
  - CONVULSION [None]
  - OVERDOSE [None]
  - RESPIRATORY DEPRESSION [None]
  - SUICIDE ATTEMPT [None]
